FAERS Safety Report 8275311-2 (Version None)
Quarter: 2012Q2

REPORT INFORMATION
  Report Type: 
  Country: None (occurrence: None)
  Receive Date: 20120411
  Receipt Date: 20120330
  Transmission Date: 20120825
  Serious: Yes (Death)
  Sender: FDA-Public Use
  Company Number: SE-PFIZER INC-2011297095

PATIENT
  Age: 47 Year
  Sex: Male
  Weight: 108 kg

DRUGS (10)
  1. CRIZOTINIB [Suspect]
     Indication: NON-SMALL CELL LUNG CANCER
     Dosage: 250 MG, 2X/DAY
     Route: 048
     Dates: start: 20111117
  2. PREDNISOLONE [Concomitant]
     Indication: MIGRAINE
     Dosage: UNK
     Dates: start: 20111108
  3. ACETYLCYSTEINE [Concomitant]
     Indication: COUGH
     Dosage: UNK
  4. VERAPAMIL [Concomitant]
     Indication: HYPERTENSION
     Dosage: UNK
     Dates: start: 20100401
  5. BUMETANIDE [Concomitant]
     Indication: HYPERTENSION
     Dosage: UNK
     Dates: start: 20100401
  6. OMEPRAZOLE [Concomitant]
     Indication: GASTRITIS PROPHYLAXIS
     Dosage: UNK
     Dates: start: 20111108
  7. MEDROL [Concomitant]
     Indication: MIGRAINE
     Dosage: UNK
     Dates: start: 20111108, end: 20111121
  8. PARACETAMOL [Concomitant]
     Indication: HEADACHE
     Dosage: UNK
  9. ZOPICLONE [Concomitant]
     Indication: INSOMNIA
     Dosage: UNK
  10. TRAMADOL [Concomitant]
     Indication: OESOPHAGEAL PAIN
     Dosage: UNK
     Dates: start: 20111114

REACTIONS (2)
  - NON-SMALL CELL LUNG CANCER [None]
  - DISEASE PROGRESSION [None]
